FAERS Safety Report 6379331-4 (Version None)
Quarter: 2009Q3

REPORT INFORMATION
  Report Type: 
  Country: None (occurrence: None)
  Receive Date: 20090928
  Receipt Date: 20090914
  Transmission Date: 20100115
  Serious: Yes (Hospitalization, Other)
  Sender: FDA-Public Use
  Company Number: US-AMGEN-STX364444

PATIENT
  Sex: Female

DRUGS (5)
  1. VECTIBIX [Suspect]
     Indication: COLORECTAL CANCER
     Route: 065
  2. OXALIPLATIN [Suspect]
  3. CALCIUM [Concomitant]
  4. MAGNESIUM [Concomitant]
  5. UNSPECIFIED ANTIHYPERTENSIVE AGENT [Concomitant]

REACTIONS (6)
  - BACK PAIN [None]
  - BLOOD PRESSURE INCREASED [None]
  - HEADACHE [None]
  - INFUSION RELATED REACTION [None]
  - INFUSION SITE PARAESTHESIA [None]
  - RASH [None]
